FAERS Safety Report 10614862 (Version 1)
Quarter: 2014Q4

REPORT INFORMATION
  Report Type: Spontaneous
  Country: GB (occurrence: GB)
  Receive Date: 20141201
  Receipt Date: 20141201
  Transmission Date: 20150529
  Serious: Yes (Life-Threatening, Hospitalization)
  Sender: FDA-Public Use
  Company Number: GB-ACCORD-027266

PATIENT
  Age: 85 Year
  Sex: Female

DRUGS (1)
  1. METHOTREXATE [Suspect]
     Active Substance: METHOTREXATE
     Indication: RHEUMATOID ARTHRITIS
     Route: 048
     Dates: end: 20140317

REACTIONS (7)
  - Tongue ulceration [Unknown]
  - Platelet count decreased [Unknown]
  - Swollen tongue [Unknown]
  - Neutropenia [Unknown]
  - Respiratory tract ulceration [Unknown]
  - White blood cell count decreased [Unknown]
  - Local swelling [Unknown]

NARRATIVE: CASE EVENT DATE: 20140314
